FAERS Safety Report 21138538 (Version 4)
Quarter: 2022Q4

REPORT INFORMATION
  Report Type: Report from Study
  Country: US (occurrence: US)
  Receive Date: 20220727
  Receipt Date: 20221005
  Transmission Date: 20230113
  Serious: Yes (Other)
  Sender: FDA-Public Use
  Company Number: US-NOVARTISTESTPH-NVSC2022US168999

PATIENT
  Sex: Female
  Weight: 72.562 kg

DRUGS (7)
  1. TREPROSTINIL [Suspect]
     Active Substance: TREPROSTINIL
     Indication: Pulmonary arterial hypertension
     Dosage: 119 NG/KG/MIN, CONT
     Route: 042
     Dates: start: 20220621
  2. TREPROSTINIL [Suspect]
     Active Substance: TREPROSTINIL
     Dosage: 122 NG/KG/MIN, CONT
     Route: 042
     Dates: start: 20220624
  3. TREPROSTINIL [Suspect]
     Active Substance: TREPROSTINIL
     Dosage: 125 NG/KG/MIN, CONT
     Route: 042
  4. REMODULIN [Concomitant]
     Active Substance: TREPROSTINIL
     Indication: Product used for unknown indication
     Dosage: UNK
     Route: 065
  5. LETAIRIS [Concomitant]
     Active Substance: AMBRISENTAN
     Indication: Product used for unknown indication
     Dosage: UNK
     Route: 065
  6. ADEMPAS [Concomitant]
     Active Substance: RIOCIGUAT
     Indication: Product used for unknown indication
     Dosage: UNK
     Route: 065
  7. AMLODIPINE [Concomitant]
     Active Substance: AMLODIPINE BESYLATE
     Indication: Product used for unknown indication
     Dosage: UNK
     Route: 065

REACTIONS (2)
  - Systemic lupus erythematosus [Not Recovered/Not Resolved]
  - Abdominal discomfort [Unknown]
